FAERS Safety Report 14491882 (Version 1)
Quarter: 2018Q1

REPORT INFORMATION
  Report Type: Spontaneous
  Country: FR (occurrence: FR)
  Receive Date: 20180206
  Receipt Date: 20180206
  Transmission Date: 20180509
  Serious: Yes (Death, Other)
  Sender: FDA-Public Use
  Company Number: FR-MYLANLABS-2018M1007042

PATIENT
  Age: 30 Year
  Sex: Male

DRUGS (8)
  1. PREDNISONE. [Suspect]
     Active Substance: PREDNISONE
     Indication: NEUROSARCOIDOSIS
  2. ENDOXAN                            /00021102/ [Suspect]
     Active Substance: CYCLOPHOSPHAMIDE
     Indication: OCULAR SARCOIDOSIS
  3. PREDNISONE. [Suspect]
     Active Substance: PREDNISONE
     Indication: PULMONARY SARCOIDOSIS
  4. PREDNISONE. [Suspect]
     Active Substance: PREDNISONE
     Indication: CARDIAC SARCOIDOSIS
     Route: 065
  5. ENDOXAN                            /00021102/ [Suspect]
     Active Substance: CYCLOPHOSPHAMIDE
     Indication: NEUROSARCOIDOSIS
  6. PREDNISONE. [Suspect]
     Active Substance: PREDNISONE
     Indication: OCULAR SARCOIDOSIS
  7. ENDOXAN                            /00021102/ [Suspect]
     Active Substance: CYCLOPHOSPHAMIDE
     Indication: PULMONARY SARCOIDOSIS
     Dosage: 700 MG/M2, MONTHLY
     Route: 065
  8. ENDOXAN                            /00021102/ [Suspect]
     Active Substance: CYCLOPHOSPHAMIDE
     Indication: CARDIAC SARCOIDOSIS

REACTIONS (3)
  - Pneumonia pseudomonal [Fatal]
  - Peritonitis bacterial [Unknown]
  - Fungal peritonitis [Unknown]
